FAERS Safety Report 7813177-2 (Version None)
Quarter: 2011Q4

REPORT INFORMATION
  Report Type: 
  Country: None (occurrence: None)
  Receive Date: 20111013
  Receipt Date: 20110930
  Transmission Date: 20120403
  Serious: No
  Sender: FDA-Public Use
  Company Number: US-B.I. PHARMACEUTICALS,INC./RIDGEFIELD-2011-BP-23345BP

PATIENT
  Sex: Female

DRUGS (4)
  1. COZAAR [Concomitant]
     Indication: HYPERTENSION
  2. ZANTAC 150 [Suspect]
     Indication: EROSIVE OESOPHAGITIS
     Dosage: 300 MG
     Route: 048
     Dates: start: 20110929, end: 20110929
  3. HYDROCHLOROTHIAZIDE [Concomitant]
     Indication: HYPERTENSION
  4. EXCEDRIN (MIGRAINE) [Concomitant]
     Indication: ARTHRITIS

REACTIONS (1)
  - BLOOD PRESSURE INCREASED [None]
